FAERS Safety Report 5720629-8 (Version None)
Quarter: 2008Q2

REPORT INFORMATION
  Report Type: 
  Country: None (occurrence: None)
  Receive Date: 20080429
  Receipt Date: 20080418
  Transmission Date: 20081010
  Serious: Yes (Hospitalization)
  Sender: FDA-Public Use
  Company Number: US-JNJFOC-20080405292

PATIENT
  Sex: Female
  Weight: 106.6 kg

DRUGS (8)
  1. FENTANYL TRANSDERMAL SYSTEM [Suspect]
     Indication: COMPLEX REGIONAL PAIN SYNDROME
     Route: 062
  2. ALDACTONE [Concomitant]
     Indication: HYPERTENSION
     Route: 048
  3. SYNTHROID [Concomitant]
     Indication: HYPOTHYROIDISM
     Route: 048
  4. LIPITOR [Concomitant]
     Indication: BLOOD CHOLESTEROL INCREASED
     Route: 048
  5. METHADONE HCL [Concomitant]
     Indication: PAIN
     Route: 048
  6. PHENERGAN [Concomitant]
     Indication: DRUG USE FOR UNKNOWN INDICATION
     Dosage: EVERY 4-6 HOURS AS NEEDED
     Route: 048
  7. BACLOFEN [Concomitant]
     Indication: MUSCLE SPASMS
     Route: 048
  8. TEMAZEPAM [Concomitant]
     Dosage: AS NEEDED
     Route: 048

REACTIONS (5)
  - APPLICATION SITE RASH [None]
  - CONDITION AGGRAVATED [None]
  - ERYTHEMA [None]
  - RASH [None]
  - STAPHYLOCOCCAL INFECTION [None]
